FAERS Safety Report 9106839 (Version 2)
Quarter: 2013Q2

REPORT INFORMATION
  Report Type: Spontaneous
  Country: US (occurrence: US)
  Receive Date: 20130221
  Receipt Date: 20130501
  Transmission Date: 20140414
  Serious: Yes (Hospitalization)
  Sender: FDA-Public Use
  Company Number: PHHY2013US016052

PATIENT
  Age: 45 Year
  Sex: Female

DRUGS (1)
  1. DEXAMETHASONE [Suspect]
     Indication: ADDISON^S DISEASE
     Dosage: 4 MG, QID

REACTIONS (11)
  - Diabetic ketoacidosis [Recovering/Resolving]
  - Metabolic acidosis [Recovering/Resolving]
  - Hyponatraemia [Unknown]
  - Glycosylated haemoglobin increased [Recovered/Resolved]
  - Otitis externa [Unknown]
  - Asthenia [Recovering/Resolving]
  - Polyuria [Recovering/Resolving]
  - Decreased appetite [Recovering/Resolving]
  - Ear pain [Unknown]
  - Purulent discharge [Unknown]
  - Hyperglycaemia [Recovering/Resolving]
